FAERS Safety Report 6123832-0 (Version None)
Quarter: 2009Q1

REPORT INFORMATION
  Report Type: 
  Country: None (occurrence: None)
  Receive Date: 20090317
  Receipt Date: 20090303
  Transmission Date: 20090719
  Serious: No
  Sender: FDA-Public Use
  Company Number: 2008BM000246

PATIENT
  Age: 3 Year
  Sex: Male
  Weight: 16.1 kg

DRUGS (3)
  1. NAGLAZYME [Suspect]
     Indication: MUCOPOLYSACCHARIDOSIS VI
     Dosage: 15 MG; QW; IVDRP
     Route: 041
     Dates: start: 20080505
  2. HYDROXIZINE [Concomitant]
  3. PRRDNTSOLON  /00016201/ [Concomitant]

REACTIONS (7)
  - ABDOMINAL PAIN [None]
  - HYPERTHERMIA [None]
  - INFUSION RELATED REACTION [None]
  - NAUSEA [None]
  - PALLOR [None]
  - TREMOR [None]
  - VOMITING [None]
